FAERS Safety Report 5634397-1 (Version None)
Quarter: 2008Q1

REPORT INFORMATION
  Report Type: 
  Country: None (occurrence: None)
  Receive Date: 20080222
  Receipt Date: 20080213
  Transmission Date: 20080703
  Serious: Yes (Hospitalization, Other)
  Sender: FDA-Public Use
  Company Number: CA-ELI_LILLY_AND_COMPANY-CA200802003209

PATIENT
  Age: 60 Year
  Sex: Female

DRUGS (8)
  1. FORTEO [Suspect]
     Indication: OSTEOPOROSIS
     Dosage: 20 UG, DAILY (1/D)
     Route: 058
     Dates: start: 20051220, end: 20070101
  2. PREDNISONE TAB [Concomitant]
  3. CYCLOSPORINE [Concomitant]
  4. LOSEC I.V. [Concomitant]
  5. DOMPERIDONE [Concomitant]
  6. SEPTRA [Concomitant]
  7. CALCIUM [Concomitant]
  8. VITAMIN D [Concomitant]

REACTIONS (2)
  - COMPLICATIONS OF BONE MARROW TRANSPLANT [None]
  - PNEUMONIA [None]
